FAERS Safety Report 9505055 (Version 1)
Quarter: 2013Q3

REPORT INFORMATION
  Report Type: Report from Study
  Country: US (occurrence: US)
  Receive Date: 20130906
  Receipt Date: 20130906
  Transmission Date: 20140515
  Serious: Yes (Other)
  Sender: FDA-Public Use
  Company Number: US-ROCHE-1267790

PATIENT
  Age: 69 Year
  Sex: Female
  Weight: 67.46 kg

DRUGS (9)
  1. HERCEPTIN [Suspect]
     Indication: BREAST CANCER
     Route: 042
  2. HERCEPTIN [Suspect]
     Dosage: RESTARTED TREATEMENT
     Route: 065
     Dates: start: 20090107
  3. HERCEPTIN [Suspect]
     Route: 065
     Dates: start: 20130402
  4. PERJETA [Suspect]
     Indication: BREAST CANCER
     Route: 065
     Dates: start: 20130402
  5. TYKERB [Suspect]
     Indication: BREAST CANCER
     Route: 065
  6. TYKERB [Suspect]
     Dosage: REDUCED DOSE
     Route: 065
  7. ENALAPRIL [Concomitant]
     Dosage: DAILY
     Route: 065
  8. ZOLOFT [Concomitant]
     Dosage: DAILY
     Route: 065
  9. AMBIEN [Concomitant]
     Dosage: DAILY
     Route: 065

REACTIONS (10)
  - Rash [Not Recovered/Not Resolved]
  - Breast cancer recurrent [Unknown]
  - Toxicity to various agents [Unknown]
  - Diarrhoea [Not Recovered/Not Resolved]
  - Diarrhoea [Unknown]
  - Nausea [Unknown]
  - Axillary mass [Unknown]
  - Dyspnoea [Unknown]
  - Iron deficiency anaemia [Unknown]
  - Osteopenia [Unknown]
